FAERS Safety Report 20807275 (Version 6)
Quarter: 2023Q2

REPORT INFORMATION
  Report Type: Spontaneous
  Country: PL (occurrence: PL)
  Receive Date: 20220510
  Receipt Date: 20230516
  Transmission Date: 20230722
  Serious: Yes (Death, Life-Threatening, Hospitalization, Disabling, Other)
  Sender: FDA-Public Use
  Company Number: PL-CELGENE-POL-20210907671

PATIENT
  Age: 72 Year
  Sex: Male

DRUGS (24)
  1. AZACITIDINE [Suspect]
     Active Substance: AZACITIDINE
     Indication: Acute myeloid leukaemia
     Route: 042
     Dates: start: 20210825
  2. AZACITIDINE [Suspect]
     Active Substance: AZACITIDINE
     Dosage: FREQUENCY TEXT: NOT PROVIDED
     Dates: start: 20210829
  3. VENETOCLAX [Suspect]
     Active Substance: VENETOCLAX
     Indication: Acute myeloid leukaemia
     Route: 048
     Dates: start: 20210825
  4. VENETOCLAX [Suspect]
     Active Substance: VENETOCLAX
     Dosage: FREQUENCY TEXT: NOT PROVIDED
     Route: 048
     Dates: start: 20210826
  5. VENETOCLAX [Suspect]
     Active Substance: VENETOCLAX
     Route: 048
     Dates: start: 20210827
  6. VENETOCLAX [Suspect]
     Active Substance: VENETOCLAX
     Route: 048
     Dates: start: 20210829
  7. PEVONEDISTAT [Suspect]
     Active Substance: PEVONEDISTAT
     Indication: Acute myeloid leukaemia
     Dosage: FREQUENCY TEXT: NOT PROVIDED
     Route: 042
     Dates: start: 20210825
  8. PEVONEDISTAT [Suspect]
     Active Substance: PEVONEDISTAT
     Dosage: FREQUENCY TEXT: NOT PROVIDED
     Dates: start: 20210829
  9. PROSTACEUM [Concomitant]
     Indication: Benign prostatic hyperplasia
  10. PROSTACEUM [Concomitant]
     Dosage: FREQUENCY TEXT: NOT PROVIDED
     Dates: start: 2005
  11. CALCIUM CHLORIDE\MAGNESIUM CHLORIDE\POTASSIUM CHLORIDE\SODIUM ACETATE\ [Concomitant]
     Active Substance: CALCIUM CHLORIDE\MAGNESIUM CHLORIDE\POTASSIUM CHLORIDE\SODIUM ACETATE\SODIUM CHLORIDE\SODIUM CITRATE
     Indication: Prophylaxis against dehydration
     Dates: start: 2005
  12. CALCIUM CHLORIDE\MAGNESIUM CHLORIDE\POTASSIUM CHLORIDE\SODIUM ACETATE\ [Concomitant]
     Active Substance: CALCIUM CHLORIDE\MAGNESIUM CHLORIDE\POTASSIUM CHLORIDE\SODIUM ACETATE\SODIUM CHLORIDE\SODIUM CITRATE
     Dosage: FREQUENCY TEXT: NOT PROVIDED
     Dates: start: 20210818, end: 20210831
  13. BISOPROLOL FUMARATE [Concomitant]
     Active Substance: BISOPROLOL FUMARATE
     Indication: Atrial fibrillation
     Dates: start: 20210825, end: 20210831
  14. BISOPROLOL FUMARATE [Concomitant]
     Active Substance: BISOPROLOL FUMARATE
     Dosage: FREQUENCY TEXT: NOT PROVIDED
     Dates: start: 2018
  15. BISOPROLOL FUMARATE [Concomitant]
     Active Substance: BISOPROLOL FUMARATE
     Dates: start: 2018
  16. FINASTER [Concomitant]
     Indication: Benign prostatic hyperplasia
     Dates: start: 2018
  17. FINASTER [Concomitant]
     Dosage: FREQUENCY TEXT: NOT PROVIDED
     Dates: start: 2005
  18. ENOXAPARIN SODIUM [Concomitant]
     Active Substance: ENOXAPARIN SODIUM
     Indication: Atrial fibrillation
     Dates: start: 2005
  19. ENOXAPARIN SODIUM [Concomitant]
     Active Substance: ENOXAPARIN SODIUM
     Dosage: FREQUENCY TEXT: NOT PROVIDED
     Dates: start: 20210804
  20. ALLOPURINOL [Concomitant]
     Active Substance: ALLOPURINOL
     Indication: Prophylaxis
     Dates: start: 20210804
  21. ALLOPURINOL [Concomitant]
     Active Substance: ALLOPURINOL
     Dates: start: 20210804
  22. ALLOPURINOL [Concomitant]
     Active Substance: ALLOPURINOL
     Dosage: FREQUENCY TEXT: NOT PROVIDED
     Dates: start: 20210818
  23. ALLOPURINOL [Concomitant]
     Active Substance: ALLOPURINOL
     Dates: start: 20210818, end: 20210831
  24. ATOSSA [ONDANSETRON] [Concomitant]
     Indication: Prophylaxis of nausea and vomiting
     Dosage: FREQUENCY TEXT: NOT PROVIDED
     Dates: start: 20210825, end: 20210831

REACTIONS (2)
  - Septic shock [Fatal]
  - Altered state of consciousness [Not Recovered/Not Resolved]

NARRATIVE: CASE EVENT DATE: 20210919
